FAERS Safety Report 20092511 (Version 3)
Quarter: 2022Q1

REPORT INFORMATION
  Report Type: Spontaneous
  Country: JP (occurrence: JP)
  Receive Date: 20211119
  Receipt Date: 20220202
  Transmission Date: 20220423
  Serious: Yes (Hospitalization, Other)
  Sender: FDA-Public Use
  Company Number: JP-JNJFOC-20211136166

PATIENT
  Age: 11 Year
  Sex: Male
  Weight: 34.4 kg

DRUGS (15)
  1. IMBRUVICA [Suspect]
     Active Substance: IBRUTINIB
     Indication: Chronic graft versus host disease
     Route: 048
     Dates: start: 20211111, end: 20211111
  2. IMBRUVICA [Suspect]
     Active Substance: IBRUTINIB
     Route: 048
     Dates: start: 20211221
  3. TACROLIMUS [Suspect]
     Active Substance: TACROLIMUS
     Indication: Chronic graft versus host disease
     Route: 041
     Dates: start: 20211018, end: 20211110
  4. TACROLIMUS [Suspect]
     Active Substance: TACROLIMUS
     Route: 041
     Dates: start: 20211111, end: 20211111
  5. TACROLIMUS [Suspect]
     Active Substance: TACROLIMUS
     Route: 041
     Dates: start: 20211113, end: 20211113
  6. PROGRAF [Suspect]
     Active Substance: TACROLIMUS
     Indication: Product used for unknown indication
     Dosage: DOSE UNKNOWN
     Route: 048
     Dates: start: 2020, end: 20211017
  7. PROGRAF [Suspect]
     Active Substance: TACROLIMUS
     Route: 048
     Dates: start: 20211126
  8. PREDNISOLONE [Suspect]
     Active Substance: PREDNISOLONE
     Indication: Chronic graft versus host disease
     Dosage: DOSE UNKNOWN
     Route: 042
     Dates: start: 2020
  9. PREDNISOLONE [Suspect]
     Active Substance: PREDNISOLONE
     Route: 042
     Dates: start: 20211020, end: 20211128
  10. PREDNISOLONE [Suspect]
     Active Substance: PREDNISOLONE
     Dosage: DOSE UNKNOWN
     Route: 048
     Dates: start: 20210625, end: 20211019
  11. PREDNISOLONE [Suspect]
     Active Substance: PREDNISOLONE
     Dosage: DOSE UNKNOWN
     Route: 048
     Dates: start: 20211129
  12. FLUCONAZOLE [Concomitant]
     Active Substance: FLUCONAZOLE
     Indication: Prophylaxis
     Dosage: AFTER BREAKFAST
     Route: 048
  13. FAMOTIDINE D EMEC [Concomitant]
     Indication: Gastritis
     Dosage: AFTER BREAKFAST AND DINNER
     Route: 048
     Dates: start: 20210625
  14. CELLCEPT [Concomitant]
     Active Substance: MYCOPHENOLATE MOFETIL
     Indication: Chronic graft versus host disease
     Dosage: AFTER BREAKFAST AND DINNER
     Route: 048
     Dates: start: 20210319
  15. SULFAMETHOXAZOLE\TRIMETHOPRIM [Concomitant]
     Active Substance: SULFAMETHOXAZOLE\TRIMETHOPRIM
     Indication: Prophylaxis
     Dosage: AFTER BREAKFAST AND DINNER, WEDNESDAY/THURSDAY/FRIDAY
     Route: 048

REACTIONS (3)
  - Posterior reversible encephalopathy syndrome [Recovered/Resolved]
  - Product use issue [Unknown]
  - Off label use [Unknown]

NARRATIVE: CASE EVENT DATE: 20211111
